FAERS Safety Report 9666577 (Version 2)
Quarter: 2013Q4

REPORT INFORMATION
  Report Type: Spontaneous
  Country: JP (occurrence: JP)
  Receive Date: 20131104
  Receipt Date: 20131129
  Transmission Date: 20140711
  Serious: Yes (Hospitalization)
  Sender: FDA-Public Use
  Company Number: PHHY2013JP124413

PATIENT
  Sex: Male

DRUGS (4)
  1. NEORAL [Suspect]
     Indication: GUILLAIN-BARRE SYNDROME
     Dosage: 100 MG, DAILY
     Route: 048
  2. NEORAL [Suspect]
     Indication: OFF LABEL USE
  3. LIVALO [Concomitant]
     Route: 048
  4. LIPITOR [Concomitant]
     Route: 048

REACTIONS (1)
  - Fall [Recovered/Resolved]
